FAERS Safety Report 8619315-6 (Version None)
Quarter: 2012Q3

REPORT INFORMATION
  Report Type: 
  Country: None (occurrence: None)
  Receive Date: 20120810
  Receipt Date: 20120730
  Transmission Date: 20120928
  Serious: Yes (Hospitalization, Other)
  Sender: FDA-Public Use
  Company Number: CIP11001874

PATIENT
  Age: 65 Year
  Sex: Female

DRUGS (7)
  1. UNITHROID (LEVOTHYROXINE SODIUM) [Concomitant]
  2. FOSAMAX [Suspect]
     Indication: OSTEOPOROSIS
     Dosage: 70 MG ONCE WEEKLY, ORAL
     Route: 048
     Dates: start: 20050301, end: 20100401
  3. ZOLOFT [Concomitant]
  4. POTASSIUM CHLORIDE [Concomitant]
  5. ASPIRIN [Concomitant]
  6. ACTONEL [Suspect]
     Indication: OSTEOPOROSIS
     Dosage: 35 MG ONCE WEEKLY, ORAL
     Route: 048
     Dates: start: 20030301, end: 20050301
  7. DESMOPRESSIN ACETATE [Concomitant]

REACTIONS (14)
  - TOXICITY TO VARIOUS AGENTS [None]
  - LOW TURNOVER OSTEOPATHY [None]
  - DRUG INTOLERANCE [None]
  - FEMUR FRACTURE [None]
  - PAIN [None]
  - PAIN IN JAW [None]
  - FALL [None]
  - PAIN IN EXTREMITY [None]
  - OSTEOPENIA [None]
  - BREAST CANCER [None]
  - STRESS FRACTURE [None]
  - SKELETAL INJURY [None]
  - NO THERAPEUTIC RESPONSE [None]
  - OESOPHAGITIS [None]
